FAERS Safety Report 7027124-7 (Version None)
Quarter: 2010Q4

REPORT INFORMATION
  Report Type: 
  Country: None (occurrence: None)
  Receive Date: 20101004
  Receipt Date: 20100923
  Transmission Date: 20110411
  Serious: Yes (Other)
  Sender: FDA-Public Use
  Company Number: US-US-EMD SERONO, INC.-231232J09USA

PATIENT
  Sex: Female
  Weight: 73 kg

DRUGS (5)
  1. REBIF [Suspect]
     Indication: MULTIPLE SCLEROSIS
     Dates: start: 20050901, end: 20070701
  2. REBIF [Suspect]
     Route: 058
     Dates: start: 20080924, end: 20090701
  3. LEVOXYL [Concomitant]
     Indication: HYPOTHYROIDISM
     Dates: start: 20040101
  4. LISINOPRIL [Concomitant]
     Indication: HYPERTENSION
     Dates: start: 20070101
  5. VITAMIN D3 [Concomitant]
     Indication: SUPPLEMENTATION THERAPY

REACTIONS (2)
  - ABDOMINAL PAIN UPPER [None]
  - BREAST CANCER [None]
